FAERS Safety Report 5623171-8 (Version None)
Quarter: 2008Q1

REPORT INFORMATION
  Report Type: 
  Country: None (occurrence: None)
  Receive Date: 20080207
  Receipt Date: 20080130
  Transmission Date: 20080703
  Serious: Yes (Hospitalization, Other)
  Sender: FDA-Public Use
  Company Number: 163-C5013-05060398

PATIENT
  Age: 61 Year
  Sex: Male
  Weight: 103.2 kg

DRUGS (3)
  1. CC-5013 (CAPSULES) [Suspect]
     Indication: MULTIPLE MYELOMA
     Dosage: 25 MG, QD ON DAYS 1-21, EVERY 28 DAYS, ORAL
     Route: 048
     Dates: start: 20050512, end: 20050720
  2. DEXAMETHASONE TAB [Suspect]
     Indication: MULTIPLE MYELOMA
     Dosage: 40 MG, QD ON DAYS 1-4, 9-12, 17-20 Q28 DAYS, ORAL
     Route: 048
     Dates: start: 20050512, end: 20050720
  3. KEFLEX [Concomitant]

REACTIONS (21)
  - ATRIAL FIBRILLATION [None]
  - CARDIO-RESPIRATORY ARREST [None]
  - CELLULITIS [None]
  - DEEP VEIN THROMBOSIS [None]
  - DEPRESSION [None]
  - DUODENAL ULCER [None]
  - DYSPNOEA [None]
  - FALL [None]
  - FATIGUE [None]
  - GASTROINTESTINAL ULCER [None]
  - HEPATIC CIRRHOSIS [None]
  - HYPERGLYCAEMIA [None]
  - HYPERKALAEMIA [None]
  - LABORATORY TEST INTERFERENCE [None]
  - MUSCULAR WEAKNESS [None]
  - REFUSAL OF TREATMENT BY PATIENT [None]
  - SPLENOMEGALY [None]
  - SYNCOPE [None]
  - VARICES OESOPHAGEAL [None]
  - VENTRICULAR TACHYCARDIA [None]
  - WOUND INFECTION [None]
